FAERS Safety Report 4827220-6 (Version None)
Quarter: 2005Q4

REPORT INFORMATION
  Report Type: 
  Country: None (occurrence: None)
  Receive Date: 20051114
  Receipt Date: 20051026
  Transmission Date: 20060501
  Serious: Yes (Hospitalization, Other)
  Sender: FDA-Public Use
  Company Number: PHRM2005FR02839

PATIENT
  Sex: Male

DRUGS (1)
  1. NEORAL [Suspect]
     Indication: LIVER TRANSPLANT
     Route: 048

REACTIONS (4)
  - DIALYSIS [None]
  - LUNG LOBECTOMY [None]
  - LUNG NEOPLASM MALIGNANT [None]
  - RENAL FAILURE [None]
